FAERS Safety Report 7601254-0 (Version None)
Quarter: 2011Q3

REPORT INFORMATION
  Report Type: 
  Country: None (occurrence: None)
  Receive Date: 20110711
  Receipt Date: 20110627
  Transmission Date: 20111222
  Serious: Yes (Other)
  Sender: FDA-Public Use
  Company Number: US-JNJFOC-20110612082

PATIENT
  Sex: Female
  Weight: 72.58 kg

DRUGS (5)
  1. REMICADE [Suspect]
     Indication: RHEUMATOID ARTHRITIS
     Route: 042
     Dates: start: 20110617
  2. REMICADE [Suspect]
     Route: 042
     Dates: start: 19990101, end: 20010101
  3. LEVOTHYROXINE SODIUM [Concomitant]
     Indication: HYPOTHYROIDISM
     Route: 048
     Dates: start: 20100101
  4. METHOTREXATE [Concomitant]
     Indication: RHEUMATOID ARTHRITIS
     Dates: start: 19970101, end: 20110201
  5. AZULFIDINE [Concomitant]
     Indication: RHEUMATOID ARTHRITIS
     Dates: start: 20110201

REACTIONS (10)
  - FEELING COLD [None]
  - HEADACHE [None]
  - MYALGIA [None]
  - HYPOTHYROIDISM [None]
  - CHILLS [None]
  - PYREXIA [None]
  - MUSCLE SPASMS [None]
  - RASH [None]
  - PAIN IN EXTREMITY [None]
  - INFUSION RELATED REACTION [None]
